FAERS Safety Report 9496592 (Version 3)
Quarter: 2013Q3

REPORT INFORMATION
  Report Type: Spontaneous
  Country: JP (occurrence: JP)
  Receive Date: 20130904
  Receipt Date: 20130919
  Transmission Date: 20140515
  Serious: Yes (Death, Life-Threatening)
  Sender: FDA-Public Use
  Company Number: JP-SANOFI-AVENTIS-2013SA087264

PATIENT
  Age: 84 Year
  Sex: Male

DRUGS (2)
  1. ACETYLSALICYLIC ACID [Suspect]
     Indication: CEREBRAL INFARCTION
     Route: 048
  2. PLAVIX [Suspect]
     Indication: CEREBRAL INFARCTION
     Route: 048

REACTIONS (9)
  - Pharyngeal haemorrhage [Not Recovered/Not Resolved]
  - Pneumonia aspiration [Not Recovered/Not Resolved]
  - Intestinal ischaemia [Fatal]
  - Respiratory failure [Fatal]
  - Hypoxia [Fatal]
  - Hypercapnia [Fatal]
  - Acute respiratory distress syndrome [Fatal]
  - Cardio-respiratory arrest [Fatal]
  - Metabolic acidosis [Not Recovered/Not Resolved]
